FAERS Safety Report 12647258 (Version 1)
Quarter: 2016Q3

REPORT INFORMATION
  Report Type: Spontaneous
  Country: US (occurrence: None)
  Receive Date: 20160811
  Receipt Date: 20160811
  Transmission Date: 20161109
  Serious: No
  Sender: FDA-Public Use
  Company Number: None

PATIENT
  Age: 27 Year
  Sex: Female

DRUGS (2)
  1. CHLORPROMAZINE. [Suspect]
     Active Substance: CHLORPROMAZINE
     Indication: PSYCHOTIC DISORDER
     Route: 048
     Dates: start: 20160806, end: 20160810
  2. CHLORPROMAZINE. [Suspect]
     Active Substance: CHLORPROMAZINE
     Indication: AGITATION
     Route: 048
     Dates: start: 20160806, end: 20160810

REACTIONS (2)
  - Headache [None]
  - Neck pain [None]

NARRATIVE: CASE EVENT DATE: 20160809
